FAERS Safety Report 9713846 (Version 1)
Quarter: 2013Q4

REPORT INFORMATION
  Report Type: Spontaneous
  Country: US (occurrence: US)
  Receive Date: 20131126
  Receipt Date: 20131126
  Transmission Date: 20140711
  Serious: Yes (Other)
  Sender: FDA-Public Use
  Company Number: US-GLAXOSMITHKLINE-A1050814A

PATIENT
  Age: 71 Year
  Sex: Female

DRUGS (3)
  1. LOVAZA [Suspect]
     Indication: PRODUCT USED FOR UNKNOWN INDICATION
     Dosage: 4CAP PER DAY
     Route: 048
     Dates: start: 201309
  2. LOVASTATIN [Concomitant]
  3. HCTZ [Concomitant]

REACTIONS (4)
  - Low density lipoprotein increased [Unknown]
  - High density lipoprotein decreased [Unknown]
  - Blood triglycerides decreased [Unknown]
  - Weight decreased [Unknown]
